FAERS Safety Report 4703516-3 (Version None)
Quarter: 2005Q2

REPORT INFORMATION
  Report Type: 
  Country: None (occurrence: None)
  Receive Date: 20050630
  Receipt Date: 20050324
  Transmission Date: 20051028
  Serious: No
  Sender: FDA-Public Use
  Company Number: US-BRISTOL-MYERS SQUIBB COMPANY-12910998

PATIENT
  Age: 45 Year
  Sex: Male

DRUGS (1)
  1. ABILIFY ORAL SOLUTION [Suspect]
     Indication: SCHIZOPHRENIA, PARANOID TYPE
     Route: 048
     Dates: start: 20050220

REACTIONS (2)
  - URINARY INCONTINENCE [None]
  - URINARY RETENTION [None]
